FAERS Safety Report 8957207 (Version 3)
Quarter: 2013Q2

REPORT INFORMATION
  Report Type: Report from Study
  Country: FR (occurrence: FR)
  Receive Date: 20121211
  Receipt Date: 20130501
  Transmission Date: 20140414
  Serious: Yes (Life-Threatening, Hospitalization)
  Sender: FDA-Public Use
  Company Number: FR-MPIJNJ-2012-07456

PATIENT
  Sex: 0

DRUGS (10)
  1. VELCADE [Suspect]
     Indication: PLASMA CELL MYELOMA
     Dosage: 1 MG, UNK
     Route: 065
     Dates: start: 20120323, end: 20121018
  2. REVLIMID [Suspect]
     Indication: PLASMA CELL MYELOMA
     Dosage: 25 MG, UNK
     Route: 005
     Dates: start: 20120323, end: 20121021
  3. DEXAMETHASONE [Suspect]
     Indication: PLASMA CELL MYELOMA
     Dosage: 20 MG, UNK
     Route: 065
     Dates: start: 20120323, end: 20121019
  4. ZELITREX [Suspect]
     Dosage: 500 MG, UNK
     Route: 048
     Dates: start: 20120323
  5. AMOXICILLIN [Suspect]
     Dosage: 500 MG, UNK
     Route: 048
     Dates: start: 20120323
  6. BACTRIM [Suspect]
     Dosage: UNK
     Route: 048
     Dates: start: 20120323
  7. INNOHEP [Suspect]
     Dosage: UNK
     Route: 058
     Dates: start: 20120323
  8. EUPANTOL [Suspect]
     Dosage: UNK
     Route: 048
     Dates: start: 20120323
  9. IMODIUM [Suspect]
     Indication: CONSTIPATION
     Dosage: UNK
     Route: 048
     Dates: start: 20121018, end: 20121021
  10. SMECTA [Suspect]
     Indication: CONSTIPATION
     Dosage: UNK
     Route: 048
     Dates: start: 20121018, end: 20121021

REACTIONS (20)
  - Haemolytic uraemic syndrome [Recovered/Resolved]
  - Escherichia bacteraemia [Recovered/Resolved]
  - Rectal haemorrhage [Not Recovered/Not Resolved]
  - Abdominal pain [Not Recovered/Not Resolved]
  - Constipation [None]
  - Colitis [None]
  - Sigmoiditis [None]
  - Salmonella test positive [None]
  - Shigella test positive [None]
  - Anaemia [None]
  - Thrombocytopenia [None]
  - Campylobacter test positive [None]
  - Yersinia test positive [None]
  - Dialysis [None]
  - Pulmonary oedema [None]
  - Tachycardia [None]
  - Arrhythmia supraventricular [None]
  - Culture urine positive [None]
  - Candida test positive [None]
  - Enterococcus test positive [None]
